FAERS Safety Report 20532628 (Version 1)
Quarter: 2022Q1

REPORT INFORMATION
  Report Type: Spontaneous
  Country: US (occurrence: US)
  Receive Date: 20220301
  Receipt Date: 20220301
  Transmission Date: 20220423
  Serious: No
  Sender: FDA-Public Use
  Company Number: US-MYLANLABS-2022M1013687

PATIENT
  Age: 86 Year
  Sex: Female
  Weight: 39.92 kg

DRUGS (1)
  1. FENTANYL TRANSDERMAL SYSTEM [Suspect]
     Active Substance: FENTANYL
     Indication: Arthralgia
     Dosage: 25 MICROGRAM PER HOUR FOR 3 DAYS
     Route: 062
     Dates: start: 20220214

REACTIONS (2)
  - Drug ineffective [Unknown]
  - Product quality issue [Unknown]

NARRATIVE: CASE EVENT DATE: 20220216
